FAERS Safety Report 7919132-6 (Version None)
Quarter: 2011Q4

REPORT INFORMATION
  Report Type: 
  Country: None (occurrence: None)
  Receive Date: 20111117
  Receipt Date: 20111107
  Transmission Date: 20120403
  Serious: Yes (Other)
  Sender: FDA-Public Use
  Company Number: US-ROCHE-1012127

PATIENT

DRUGS (3)
  1. PACLITAXEL [Suspect]
     Indication: BREAST CANCER
     Route: 042
     Dates: start: 20030612
  2. HERCEPTIN [Suspect]
     Indication: BREAST CANCER
     Dosage: OVER 90 MINUTES ON  DAY 1 OF WEEK 1 (LOADING DOSE, CYCLE 1 ONLY)
     Route: 042
     Dates: start: 20030612
  3. HERCEPTIN [Suspect]
     Dosage: OVER 30 MINUTES QW  EVERY 3 WEEKS, WEEK 1
     Route: 042
     Dates: start: 20030612

REACTIONS (1)
  - STEVENS-JOHNSON SYNDROME [None]
